FAERS Safety Report 12319443 (Version 1)
Quarter: 2016Q2

REPORT INFORMATION
  Report Type: Spontaneous
  Country: US (occurrence: US)
  Receive Date: 20160429
  Receipt Date: 20160429
  Transmission Date: 20160815
  Serious: No
  Sender: FDA-Public Use
  Company Number: US-ROCHE-1600447

PATIENT
  Sex: Female
  Weight: 53.1 kg

DRUGS (8)
  1. AVASTIN [Suspect]
     Active Substance: BEVACIZUMAB
     Indication: RENAL CELL CARCINOMA
     Dosage: 5TH LINE THERAPY
     Route: 065
     Dates: start: 20141203
  2. ADVIL [Concomitant]
     Active Substance: IBUPROFEN
     Route: 048
  3. NAPROXEN. [Concomitant]
     Active Substance: NAPROXEN
     Route: 048
  4. METOPROLOL SUCCINATE. [Concomitant]
     Active Substance: METOPROLOL SUCCINATE
     Route: 048
  5. LASIX [Concomitant]
     Active Substance: FUROSEMIDE
     Route: 048
  6. FERROUS SULFATE. [Concomitant]
     Active Substance: FERROUS SULFATE
     Route: 048
  7. FLONASE (UNITED STATES) [Concomitant]
     Route: 045
  8. OMEPRAZOLE. [Concomitant]
     Active Substance: OMEPRAZOLE
     Route: 065

REACTIONS (7)
  - Oedema [Unknown]
  - Headache [Unknown]
  - Anaemia [Recovered/Resolved]
  - Pain of skin [Unknown]
  - Paranasal sinus discomfort [Unknown]
  - Thrombocytosis [Recovered/Resolved]
  - Upper-airway cough syndrome [Unknown]
